FAERS Safety Report 4471598-2 (Version None)
Quarter: 2004Q4

REPORT INFORMATION
  Report Type: 
  Country: None (occurrence: None)
  Receive Date: 20041012
  Receipt Date: 20041005
  Transmission Date: 20050328
  Serious: Yes (Hospitalization)
  Sender: FDA-Public Use
  Company Number: 2004JP001776

PATIENT
  Age: 79 Year
  Sex: Female
  Weight: 52 kg

DRUGS (8)
  1. SAWACILLIN [Suspect]
     Route: 048
     Dates: start: 20040722, end: 20040722
  2. LOXONIN [Concomitant]
     Route: 048
  3. XYLOCAINE [Concomitant]
  4. PANALDINE [Concomitant]
     Route: 048
  5. NU-LOTAN [Concomitant]
  6. ISOSORBIDE MONONITRATE [Concomitant]
  7. ALTAT [Concomitant]
  8. MARZULENE [Concomitant]
     Route: 048

REACTIONS (3)
  - DIZZINESS [None]
  - HOT FLUSH [None]
  - RASH [None]
